FAERS Safety Report 13860133 (Version 1)
Quarter: 2017Q3

REPORT INFORMATION
  Report Type: Spontaneous
  Country: CA (occurrence: CA)
  Receive Date: 20170811
  Receipt Date: 20170811
  Transmission Date: 20171127
  Serious: Yes (Life-Threatening, Other)
  Sender: FDA-Public Use
  Company Number: CA-ALVOGEN-2017-ALVOGEN-093047

PATIENT
  Age: 2 Day
  Sex: Male
  Weight: 2.4 kg

DRUGS (9)
  1. FENTANYL. [Suspect]
     Active Substance: FENTANYL
     Indication: PROCEDURAL PAIN
     Dosage: 1 DF IS 1-3 MICROG/KG
  2. ROCURONIUM [Concomitant]
     Active Substance: ROCURONIUM BROMIDE
     Indication: HYPOTONIA
  3. FENTANYL. [Suspect]
     Active Substance: FENTANYL
     Indication: HYPOTONIA
     Dosage: INTERMITTENT BOLI
  4. FENTANYL. [Suspect]
     Active Substance: FENTANYL
     Indication: ANAESTHESIA
     Dosage: INTERMITTENT BOLI
  5. FENTANYL. [Suspect]
     Active Substance: FENTANYL
     Indication: PROCEDURAL PAIN
     Dosage: 1 DF IS 0.5-1 MICROG/KG
  6. FENTANYL. [Suspect]
     Active Substance: FENTANYL
     Indication: PAIN
     Dosage: INTRAVENOUS BOLI
  7. SEVOFLURANE. [Concomitant]
     Active Substance: SEVOFLURANE
     Indication: MAINTENANCE OF ANAESTHESIA
  8. SEVOFLURANE. [Concomitant]
     Active Substance: SEVOFLURANE
     Indication: HYPOTONIA
  9. ROCURONIUM [Concomitant]
     Active Substance: ROCURONIUM BROMIDE
     Indication: ANAESTHESIA

REACTIONS (4)
  - Atelectasis [Recovered/Resolved]
  - Respiratory depression [Recovered/Resolved]
  - Drug ineffective [Unknown]
  - Sedation complication [Recovered/Resolved]
